FAERS Safety Report 12764257 (Version 1)
Quarter: 2016Q3

REPORT INFORMATION
  Report Type: Spontaneous
  Country: US (occurrence: US)
  Receive Date: 20160920
  Receipt Date: 20160920
  Transmission Date: 20161109
  Serious: Yes (Other)
  Sender: FDA-Public Use
  Company Number: US-TEVA-694085USA

PATIENT
  Sex: Female

DRUGS (1)
  1. COPAXONE [Suspect]
     Active Substance: GLATIRAMER ACETATE
     Dosage: UNKNOWN FORM STRENGTH
     Route: 065
     Dates: start: 201509

REACTIONS (8)
  - Insomnia [Unknown]
  - Arthritis [Unknown]
  - Pain [Unknown]
  - Peroneal nerve palsy [Unknown]
  - Mobility decreased [Unknown]
  - Intentional product misuse [Unknown]
  - Headache [Unknown]
  - Abasia [Unknown]
